FAERS Safety Report 25289948 (Version 1)
Quarter: 2025Q2

REPORT INFORMATION
  Report Type: Spontaneous
  Country: CN (occurrence: CN)
  Receive Date: 20250509
  Receipt Date: 20250509
  Transmission Date: 20250717
  Serious: Yes (Hospitalization)
  Sender: ELI LILLY AND COMPANY
  Company Number: CN-Merck Healthcare KGaA-2025021948

PATIENT
  Age: 58 Year
  Sex: Female
  Weight: 59 kg

DRUGS (5)
  1. ERBITUX [Suspect]
     Active Substance: CETUXIMAB
     Indication: Colon cancer
     Dosage: 400 MG, WEEKLY (1/W)
     Route: 041
     Dates: start: 20250328, end: 20250404
  2. IRINOTECAN HYDROCHLORIDE [Suspect]
     Active Substance: IRINOTECAN HYDROCHLORIDE
     Indication: Colon cancer
     Route: 041
     Dates: start: 20250328, end: 20250328
  3. FLUOROURACIL [Suspect]
     Active Substance: FLUOROURACIL
     Indication: Colon cancer
     Route: 041
     Dates: start: 20250328, end: 20250330
  4. SODIUM CHLORIDE [Concomitant]
     Active Substance: SODIUM CHLORIDE
     Indication: Medication dilution
     Route: 041
     Dates: start: 20250328, end: 20250328
  5. SODIUM CHLORIDE [Concomitant]
     Active Substance: SODIUM CHLORIDE
     Dosage: 250 ML, WEEKLY (1/W)
     Route: 041
     Dates: start: 20250328, end: 20250404

REACTIONS (2)
  - Dermatitis allergic [Recovering/Resolving]
  - Mouth ulceration [Recovering/Resolving]

NARRATIVE: CASE EVENT DATE: 20250417
